FAERS Safety Report 20543489 (Version 1)
Quarter: 2022Q1

REPORT INFORMATION
  Report Type: Spontaneous
  Country: DE (occurrence: None)
  Receive Date: 20220302
  Receipt Date: 20220302
  Transmission Date: 20220424
  Serious: Yes (Other)
  Sender: FDA-Public Use
  Company Number: 2022A086003

PATIENT
  Sex: Female

DRUGS (5)
  1. FASENRA [Suspect]
     Active Substance: BENRALIZUMAB
     Indication: Asthma
     Dosage: UNKNOWN
     Route: 058
  2. PREDNISOLONE [Concomitant]
     Active Substance: PREDNISOLONE
  3. SPIRIVA [Concomitant]
     Active Substance: TIOTROPIUM BROMIDE MONOHYDRATE
  4. FOSTER [Concomitant]
     Active Substance: BECLOMETHASONE\FORMOTEROL
  5. XOLAIR [Concomitant]
     Active Substance: OMALIZUMAB

REACTIONS (6)
  - Adrenal insufficiency [Unknown]
  - Dyspnoea [Unknown]
  - Overweight [Unknown]
  - Obesity [Unknown]
  - Cushingoid [Unknown]
  - Product dose omission issue [Unknown]
